FAERS Safety Report 6104321-6 (Version None)
Quarter: 2009Q1

REPORT INFORMATION
  Report Type: 
  Country: None (occurrence: None)
  Receive Date: 20090302
  Receipt Date: 20090220
  Transmission Date: 20090719
  Serious: Yes (Other)
  Sender: FDA-Public Use
  Company Number: 2008SP025565

PATIENT
  Age: 30 Year
  Sex: Male
  Weight: 55.2 kg

DRUGS (3)
  1. PEG-INTRON [Suspect]
     Indication: DRUG USE FOR UNKNOWN INDICATION
     Dosage: 80 MG; QW; IV
     Route: 042
     Dates: start: 20071017, end: 20080623
  2. RIBAVIRIN [Suspect]
     Indication: DRUG USE FOR UNKNOWN INDICATION
     Dosage: 2 GM; QD;
     Dates: start: 20071017, end: 20080623
  3. OMEPRAZOLE [Concomitant]

REACTIONS (3)
  - ASCITES [None]
  - ASTERIXIS [None]
  - JAUNDICE [None]
